FAERS Safety Report 7417444-6 (Version None)
Quarter: 2011Q2

REPORT INFORMATION
  Report Type: 
  Country: None (occurrence: None)
  Receive Date: 20110415
  Receipt Date: 20110411
  Transmission Date: 20111010
  Serious: Yes (Hospitalization)
  Sender: FDA-Public Use
  Company Number: JP-ABBOTT-11P-087-0718276-00

PATIENT
  Sex: Female

DRUGS (6)
  1. HUMIRA [Suspect]
     Indication: RHEUMATOID ARTHRITIS
     Route: 058
     Dates: start: 20091111, end: 20110301
  2. MINODRONIC ACID HYDRATE [Concomitant]
     Indication: OSTEOPOROSIS
     Dosage: 1 MILLIGRAM DAILY
     Route: 048
  3. PREDNISOLONE [Concomitant]
     Indication: RHEUMATOID ARTHRITIS
     Dosage: 2.75 MILLIGRAMS DAILY
     Route: 048
  4. MIZORIBINE [Concomitant]
     Indication: RHEUMATOID ARTHRITIS
     Dosage: 100 MILLIGRAMS DAILY
     Route: 048
  5. BUCILLAMINE [Concomitant]
     Indication: RHEUMATOID ARTHRITIS
     Dosage: 200 MILLIGRAMS DAILY
     Route: 048
  6. METHOTREXATE [Concomitant]
     Indication: RHEUMATOID ARTHRITIS
     Dosage: 4MG/WK
     Route: 048

REACTIONS (2)
  - CEREBRAL INFARCTION [None]
  - HERPES ZOSTER [None]
